FAERS Safety Report 13132083 (Version 1)
Quarter: 2017Q1

REPORT INFORMATION
  Report Type: Spontaneous
  Country: US (occurrence: US)
  Receive Date: 20170119
  Receipt Date: 20170119
  Transmission Date: 20170428
  Serious: Yes (Death, Other)
  Sender: FDA-Public Use
  Company Number: US-BEH-2017077348

PATIENT
  Age: 63 Year
  Sex: Male

DRUGS (6)
  1. OCTREOTIDE. [Concomitant]
     Active Substance: OCTREOTIDE
  2. MIDODRINE [Concomitant]
     Active Substance: MIDODRINE
  3. ALBUMIN HUMAN (INN) [Suspect]
     Active Substance: ALBUMIN HUMAN
     Indication: HEPATORENAL SYNDROME
     Dosage: 1000 MG/KG, UNK
     Route: 042
  4. ALBUMIN HUMAN (INN) [Suspect]
     Active Substance: ALBUMIN HUMAN
     Indication: ASCITES
     Dosage: 25-50 MG, QD
     Route: 042
  5. SORAFENIB [Concomitant]
     Active Substance: SORAFENIB
     Indication: HEPATOCELLULAR CARCINOMA
     Dosage: 400 MG, BID
     Route: 065
  6. ANTIBIOTICS [Concomitant]
     Active Substance: UNSPECIFIED INGREDIENT

REACTIONS (1)
  - Drug ineffective [Fatal]
